FAERS Safety Report 6573896-5 (Version None)
Quarter: 2010Q1

REPORT INFORMATION
  Report Type: 
  Country: None (occurrence: None)
  Receive Date: 20100208
  Receipt Date: 20100126
  Transmission Date: 20100710
  Serious: Yes (Life-Threatening, Hospitalization)
  Sender: FDA-Public Use
  Company Number: DE-B.I. PHARMACEUTICALS,INC./RIDGEFIELD-2010-DE-00424DE

PATIENT
  Age: 78 Year
  Sex: Male
  Weight: 90 kg

DRUGS (4)
  1. ALNA [Suspect]
     Indication: BENIGN PROSTATIC HYPERPLASIA
     Dosage: 0.4 MG
     Route: 048
     Dates: end: 20090415
  2. FALITHROM [Suspect]
     Indication: ATRIAL FIBRILLATION
     Dosage: 3 MG
     Route: 048
     Dates: end: 20090415
  3. DIOVAN HCT [Suspect]
     Indication: HYPERTENSION
     Dosage: 40 MG VALSARTAN + 6,25 MG HCT
     Route: 048
     Dates: end: 20090415
  4. TORSEMIDE [Suspect]
     Indication: HYPERTENSION
     Route: 048
     Dates: end: 20090415

REACTIONS (1)
  - PANCREATITIS ACUTE [None]
